FAERS Safety Report 20655333 (Version 2)
Quarter: 2022Q2

REPORT INFORMATION
  Report Type: Spontaneous
  Country: AU (occurrence: None)
  Receive Date: 20220330
  Receipt Date: 20220407
  Transmission Date: 20220721
  Serious: Yes (Other)
  Sender: FDA-Public Use
  Company Number: AU-ROCHE-3060261

PATIENT

DRUGS (45)
  1. RITUXIMAB [Suspect]
     Active Substance: RITUXIMAB
     Indication: Central nervous system lymphoma
     Route: 065
  2. RITUXIMAB [Suspect]
     Active Substance: RITUXIMAB
     Indication: Chronic lymphocytic leukaemia
  3. RITUXIMAB [Suspect]
     Active Substance: RITUXIMAB
     Indication: Marginal zone lymphoma
  4. OBINUTUZUMAB [Suspect]
     Active Substance: OBINUTUZUMAB
     Indication: Central nervous system lymphoma
     Route: 042
  5. OBINUTUZUMAB [Suspect]
     Active Substance: OBINUTUZUMAB
     Indication: Chronic lymphocytic leukaemia
  6. OBINUTUZUMAB [Suspect]
     Active Substance: OBINUTUZUMAB
     Indication: Mantle cell lymphoma
  7. VENETOCLAX [Suspect]
     Active Substance: VENETOCLAX
     Indication: Central nervous system lymphoma
     Route: 048
  8. VENETOCLAX [Suspect]
     Active Substance: VENETOCLAX
     Indication: Central nervous system lymphoma
  9. TEMOZOLOMIDE [Suspect]
     Active Substance: TEMOZOLOMIDE
     Indication: Central nervous system lymphoma
     Route: 065
  10. TEMOZOLOMIDE [Suspect]
     Active Substance: TEMOZOLOMIDE
     Indication: Central nervous system lymphoma
  11. TEMOZOLOMIDE [Suspect]
     Active Substance: TEMOZOLOMIDE
     Indication: Marginal zone lymphoma
  12. TEMOZOLOMIDE [Suspect]
     Active Substance: TEMOZOLOMIDE
     Indication: Mantle cell lymphoma
  13. TEMOZOLOMIDE [Suspect]
     Active Substance: TEMOZOLOMIDE
     Indication: Chronic lymphocytic leukaemia
  14. CARBOPLATIN [Suspect]
     Active Substance: CARBOPLATIN
     Indication: Central nervous system lymphoma
     Route: 065
  15. CARBOPLATIN [Suspect]
     Active Substance: CARBOPLATIN
     Indication: Central nervous system lymphoma
  16. CARBOPLATIN [Suspect]
     Active Substance: CARBOPLATIN
     Indication: Marginal zone lymphoma
  17. CARBOPLATIN [Suspect]
     Active Substance: CARBOPLATIN
     Indication: Mantle cell lymphoma
  18. CARBOPLATIN [Suspect]
     Active Substance: CARBOPLATIN
     Indication: Chronic lymphocytic leukaemia
  19. DOXYCYCLINE [Suspect]
     Active Substance: DOXYCYCLINE
     Indication: Central nervous system lymphoma
     Route: 065
  20. DOXYCYCLINE [Suspect]
     Active Substance: DOXYCYCLINE
     Indication: Central nervous system lymphoma
  21. DOXYCYCLINE [Suspect]
     Active Substance: DOXYCYCLINE
     Indication: Marginal zone lymphoma
  22. DOXYCYCLINE [Suspect]
     Active Substance: DOXYCYCLINE
     Indication: Mantle cell lymphoma
  23. DOXYCYCLINE [Suspect]
     Active Substance: DOXYCYCLINE
     Indication: Chronic lymphocytic leukaemia
  24. METHOTREXATE [Suspect]
     Active Substance: METHOTREXATE
     Indication: Central nervous system lymphoma
     Route: 065
  25. METHOTREXATE [Suspect]
     Active Substance: METHOTREXATE
     Indication: Central nervous system lymphoma
  26. METHOTREXATE [Suspect]
     Active Substance: METHOTREXATE
     Indication: Marginal zone lymphoma
  27. METHOTREXATE [Suspect]
     Active Substance: METHOTREXATE
     Indication: Chronic lymphocytic leukaemia
  28. IFOSFAMIDE [Suspect]
     Active Substance: IFOSFAMIDE
     Indication: Central nervous system lymphoma
     Route: 065
  29. IFOSFAMIDE [Suspect]
     Active Substance: IFOSFAMIDE
     Indication: Central nervous system lymphoma
  30. IFOSFAMIDE [Suspect]
     Active Substance: IFOSFAMIDE
     Indication: Marginal zone lymphoma
  31. IFOSFAMIDE [Suspect]
     Active Substance: IFOSFAMIDE
     Indication: Mantle cell lymphoma
  32. DEXAMETHASONE [Suspect]
     Active Substance: DEXAMETHASONE
     Indication: Central nervous system lymphoma
     Route: 065
  33. DEXAMETHASONE [Suspect]
     Active Substance: DEXAMETHASONE
     Indication: Central nervous system lymphoma
  34. OFATUMUMAB [Suspect]
     Active Substance: OFATUMUMAB
     Indication: Central nervous system lymphoma
     Route: 065
  35. OFATUMUMAB [Suspect]
     Active Substance: OFATUMUMAB
     Indication: Central nervous system lymphoma
  36. OFATUMUMAB [Suspect]
     Active Substance: OFATUMUMAB
     Indication: Marginal zone lymphoma
  37. OFATUMUMAB [Suspect]
     Active Substance: OFATUMUMAB
     Indication: Mantle cell lymphoma
  38. ETOPOSIDE [Suspect]
     Active Substance: ETOPOSIDE
     Indication: Central nervous system lymphoma
     Route: 065
  39. ETOPOSIDE [Suspect]
     Active Substance: ETOPOSIDE
     Indication: Central nervous system lymphoma
  40. ETOPOSIDE [Suspect]
     Active Substance: ETOPOSIDE
     Indication: Marginal zone lymphoma
  41. ETOPOSIDE [Suspect]
     Active Substance: ETOPOSIDE
     Indication: Chronic lymphocytic leukaemia
  42. IBRUTINIB [Suspect]
     Active Substance: IBRUTINIB
     Indication: Central nervous system lymphoma
     Route: 048
  43. IBRUTINIB [Suspect]
     Active Substance: IBRUTINIB
     Indication: Chronic lymphocytic leukaemia
     Route: 048
  44. IBRUTINIB [Suspect]
     Active Substance: IBRUTINIB
     Indication: Marginal zone lymphoma
  45. IBRUTINIB [Suspect]
     Active Substance: IBRUTINIB
     Indication: Mantle cell lymphoma

REACTIONS (10)
  - Neutropenia [Unknown]
  - Anaemia [Unknown]
  - Aspergillus infection [Unknown]
  - Atrial fibrillation [Unknown]
  - Cytopenia [Unknown]
  - Disease progression [Unknown]
  - Febrile neutropenia [Unknown]
  - Haemorrhage [Unknown]
  - Infection [Unknown]
  - Thrombocytopenia [Unknown]
